FAERS Safety Report 6602244-7 (Version None)
Quarter: 2010Q1

REPORT INFORMATION
  Report Type: 
  Country: None (occurrence: None)
  Receive Date: 20100225
  Receipt Date: 20100224
  Transmission Date: 20100710
  Serious: Yes (Other)
  Sender: FDA-Public Use
  Company Number: JP-PFIZER INC-2010024056

PATIENT
  Age: 85 Year
  Sex: Female

DRUGS (1)
  1. CELECOX [Suspect]
     Dosage: 200 MG, UNKNOW/D
     Route: 048

REACTIONS (1)
  - BRADYCARDIA [None]
